FAERS Safety Report 15091280 (Version 1)
Quarter: 2018Q2

REPORT INFORMATION
  Report Type: Spontaneous
  Country: US (occurrence: US)
  Receive Date: 20180629
  Receipt Date: 20180629
  Transmission Date: 20180711
  Serious: No
  Sender: FDA-Public Use
  Company Number: US-AMGEN-USASP2015093106

PATIENT
  Age: 63 Year
  Sex: Female

DRUGS (4)
  1. DILANTIN [Concomitant]
     Active Substance: PHENYTOIN
  2. FENOFIBRATE. [Concomitant]
     Active Substance: FENOFIBRATE
  3. PROLIA [Suspect]
     Active Substance: DENOSUMAB
     Indication: OSTEOPOROSIS
     Dosage: UNK UNK, Q6MO
     Route: 065
     Dates: start: 201502
  4. PHENOBARBITONE                     /00023201/ [Concomitant]
     Active Substance: PHENOBARBITAL

REACTIONS (5)
  - Eye swelling [Unknown]
  - Eyelid oedema [Unknown]
  - Swelling face [Recovered/Resolved]
  - Pyrexia [Unknown]
  - Dyspnoea [Unknown]

NARRATIVE: CASE EVENT DATE: 20150905
